FAERS Safety Report 8048662-4 (Version None)
Quarter: 2012Q1

REPORT INFORMATION
  Report Type: 
  Country: None (occurrence: None)
  Receive Date: 20120117
  Receipt Date: 20120109
  Transmission Date: 20120608
  Serious: Yes (Other)
  Sender: FDA-Public Use
  Company Number: TR-BAYER-2012-002990

PATIENT
  Age: 74 Year
  Sex: Female

DRUGS (3)
  1. ENOXAPARIN [Suspect]
  2. ACETYLSALICYLIC ACID SRT [Suspect]
  3. CLOPIDOGREL [Suspect]

REACTIONS (1)
  - CYANOSIS [None]
